FAERS Safety Report 9921698 (Version 2)
Quarter: 2014Q1

REPORT INFORMATION
  Report Type: Spontaneous
  Country: GB (occurrence: GB)
  Receive Date: 20140225
  Receipt Date: 20140331
  Transmission Date: 20141002
  Serious: Yes (Death, Hospitalization, Other)
  Sender: FDA-Public Use
  Company Number: GB-TEVA-463473ISR

PATIENT
  Age: 22 Year
  Sex: Male

DRUGS (3)
  1. TRAMADOL [Suspect]
     Dosage: 20 TABLET, SINGLE
     Route: 048
  2. BENZODIAZEPINES NOS [Suspect]
  3. CANNABIS [Suspect]
     Indication: PRODUCT USED FOR UNKNOWN INDICATION

REACTIONS (6)
  - Overdose [Fatal]
  - Multi-organ failure [Fatal]
  - Circulatory collapse [Unknown]
  - Dyspnoea [Unknown]
  - Drug abuse [Unknown]
  - Drug diversion [Unknown]
